FAERS Safety Report 9175473 (Version 1)
Quarter: 2013Q1

REPORT INFORMATION
  Report Type: Spontaneous
  Country: US (occurrence: US)
  Receive Date: 20130320
  Receipt Date: 20130320
  Transmission Date: 20140127
  Serious: No
  Sender: FDA-Public Use
  Company Number: US-PFIZER INC-2013088010

PATIENT
  Sex: Female

DRUGS (3)
  1. GEODON [Suspect]
     Indication: MANIA
     Dosage: 40 MG, UNK
  2. GEODON [Suspect]
     Indication: DEPRESSION
  3. TOPIMAX [Concomitant]
     Dosage: UNK

REACTIONS (3)
  - Alopecia [Unknown]
  - Amnesia [Unknown]
  - Off label use [Unknown]
